FAERS Safety Report 4650332-7 (Version None)
Quarter: 2005Q2

REPORT INFORMATION
  Report Type: 
  Country: None (occurrence: None)
  Receive Date: 20050428
  Receipt Date: 20050415
  Transmission Date: 20051028
  Serious: Yes (Other)
  Sender: FDA-Public Use
  Company Number: 2005056951

PATIENT
  Age: 32 Year
  Sex: Female

DRUGS (3)
  1. BEXTRA [Suspect]
     Indication: ENDOMETRIOSIS
     Dosage: 20 MG (20 MG, 1IN 1 D), ORAL
     Route: 048
     Dates: start: 20040701
  2. PROGESTERONE [Suspect]
     Indication: ILL-DEFINED DISORDER
     Dates: start: 20040801
  3. HYDROCHLOROTHIAZIDE [Concomitant]

REACTIONS (2)
  - HYPERTENSION [None]
  - WEIGHT INCREASED [None]
